FAERS Safety Report 11167453 (Version 4)
Quarter: 2015Q3

REPORT INFORMATION
  Report Type: Report from Study
  Country: CN (occurrence: CN)
  Receive Date: 20150605
  Receipt Date: 20150821
  Transmission Date: 20151125
  Serious: Yes (Hospitalization)
  Sender: FDA-Public Use
  Company Number: CN-B.I. PHARMACEUTICALS,INC./RIDGEFIELD-2015-BI-28826BI

PATIENT
  Age: 52 Year
  Sex: Female
  Weight: 37.5 kg

DRUGS (2)
  1. OMEPRAZOLE. [Concomitant]
     Active Substance: OMEPRAZOLE
     Indication: CHRONIC GASTRITIS
     Dosage: 40 MG
     Route: 048
  2. AFATINIB [Suspect]
     Active Substance: AFATINIB
     Indication: NON-SMALL CELL LUNG CANCER
     Dosage: 40 MG
     Route: 048
     Dates: start: 20150330

REACTIONS (1)
  - Gastritis [Recovered/Resolved]

NARRATIVE: CASE EVENT DATE: 20150527
